FAERS Safety Report 8821069 (Version 2)
Quarter: 2012Q4

REPORT INFORMATION
  Report Type: 
  Country: US (occurrence: US)
  Receive Date: 20121002
  Receipt Date: 20121023
  Transmission Date: 20130627
  Serious: Yes (Death)
  Sender: FDA-Public Use
  Company Number: US-ROCHE-1131268

PATIENT
  Sex: Female

DRUGS (2)
  1. RITUXAN [Suspect]
     Indication: LYMPHOMA
     Route: 042
     Dates: start: 20080107, end: 20090607
  2. RITUXAN [Suspect]
     Indication: OFF LABEL USE

REACTIONS (1)
  - Disease progression [Fatal]
